FAERS Safety Report 13557356 (Version 1)
Quarter: 2017Q2

REPORT INFORMATION
  Report Type: Spontaneous
  Country: US (occurrence: US)
  Receive Date: 20170518
  Receipt Date: 20170518
  Transmission Date: 20170830
  Serious: No
  Sender: FDA-Public Use
  Company Number: US-MYLANLABS-2016M1047119

PATIENT
  Sex: Female

DRUGS (2)
  1. OLUX-E [Suspect]
     Active Substance: CLOBETASOL PROPIONATE
     Indication: VULVAL DISORDER
     Dosage: 100 G, BID
     Dates: start: 20130603, end: 20130703
  2. OLUX-E [Suspect]
     Active Substance: CLOBETASOL PROPIONATE
     Dosage: 100 G, TWICE WEEKLY
     Dates: start: 20130703

REACTIONS (1)
  - Headache [Recovering/Resolving]

NARRATIVE: CASE EVENT DATE: 20130603
